FAERS Safety Report 14723177 (Version 1)
Quarter: 2018Q2

REPORT INFORMATION
  Report Type: Spontaneous
  Country: FR (occurrence: FR)
  Receive Date: 20180405
  Receipt Date: 20180405
  Transmission Date: 20180711
  Serious: Yes (Hospitalization)
  Sender: FDA-Public Use
  Company Number: FR-ASTRAZENECA-2018SE39778

PATIENT
  Age: 86 Year
  Sex: Female

DRUGS (2)
  1. VENTOLINE [Suspect]
     Active Substance: ALBUTEROL
     Indication: ASTHMA
     Route: 055
  2. SYMBICORT [Suspect]
     Active Substance: BUDESONIDE\FORMOTEROL FUMARATE DIHYDRATE
     Indication: ASTHMA
     Route: 055

REACTIONS (3)
  - Dyspnoea [Recovering/Resolving]
  - Palpitations [Recovering/Resolving]
  - Atrial fibrillation [Recovering/Resolving]

NARRATIVE: CASE EVENT DATE: 20180116
